FAERS Safety Report 17629485 (Version 1)
Quarter: 2020Q2

REPORT INFORMATION
  Report Type: Spontaneous
  Country: US (occurrence: US)
  Receive Date: 20200406
  Receipt Date: 20200406
  Transmission Date: 20200713
  Serious: Yes (Life-Threatening, Hospitalization)
  Sender: FDA-Public Use
  Company Number: US-EMCURE PHARMACEUTICALS LTD-2020-EPL-000351

PATIENT
  Age: 36 Year
  Sex: Female

DRUGS (2)
  1. METFORMIN [Suspect]
     Active Substance: METFORMIN HYDROCHLORIDE
     Indication: DIABETES MELLITUS
     Dosage: 1000 MILLIGRAM, 2 DOSE PER 1 D
  2. MEDROXYPROGESTERONE [Concomitant]
     Active Substance: MEDROXYPROGESTERONE
     Indication: MENORRHAGIA
     Dosage: 20 MILLIGRAM, 2 DOSE PER 1 D
     Route: 048

REACTIONS (5)
  - Thrombotic thrombocytopenic purpura [Recovering/Resolving]
  - Pancytopenia [Recovering/Resolving]
  - Acute kidney injury [Recovering/Resolving]
  - Vitamin B12 deficiency [Recovering/Resolving]
  - Haemolytic anaemia [Recovering/Resolving]
